FAERS Safety Report 7998749-7 (Version None)
Quarter: 2011Q4

REPORT INFORMATION
  Report Type: 
  Country: None (occurrence: None)
  Receive Date: 20111221
  Receipt Date: 20111026
  Transmission Date: 20120403
  Serious: Yes (Other)
  Sender: FDA-Public Use
  Company Number: US-PURDUE-USA-2011-0079873

PATIENT
  Sex: Male

DRUGS (3)
  1. OXYCONTIN [Suspect]
     Indication: PAIN
  2. OXYCONTIN [Suspect]
     Indication: NERVE INJURY
  3. OXYCONTIN [Suspect]
     Indication: SURGERY

REACTIONS (2)
  - TOOTH LOSS [None]
  - DRUG DEPENDENCE [None]
